FAERS Safety Report 24199935 (Version 2)
Quarter: 2024Q3

REPORT INFORMATION
  Report Type: Spontaneous
  Country: US (occurrence: US)
  Receive Date: 20240812
  Receipt Date: 20240906
  Transmission Date: 20241016
  Serious: No
  Sender: BAYER
  Company Number: US-BAYER-2024A115032

PATIENT
  Age: 50 Year
  Sex: Male

DRUGS (1)
  1. STIVARGA [Suspect]
     Active Substance: REGORAFENIB MONOHYDRATE
     Dosage: 120 MG, QD
     Dates: start: 2023

REACTIONS (5)
  - Oral pain [Not Recovered/Not Resolved]
  - Oral discomfort [Not Recovered/Not Resolved]
  - Eating disorder [Not Recovered/Not Resolved]
  - Off label use [None]
  - Tongue discomfort [Not Recovered/Not Resolved]
